FAERS Safety Report 12919903 (Version 2)
Quarter: 2016Q4

REPORT INFORMATION
  Report Type: Spontaneous
  Country: US (occurrence: US)
  Receive Date: 20161108
  Receipt Date: 20161115
  Transmission Date: 20170207
  Serious: Yes (Other)
  Sender: FDA-Public Use
  Company Number: US-PFIZER INC-2016516256

PATIENT
  Sex: Female
  Weight: 82.54 kg

DRUGS (1)
  1. PREMARIN [Suspect]
     Active Substance: ESTROGENS, CONJUGATED

REACTIONS (4)
  - Depression [Unknown]
  - Weight increased [Unknown]
  - Feeling abnormal [Unknown]
  - Dyspnoea [Unknown]
